FAERS Safety Report 13450671 (Version 2)
Quarter: 2017Q2

REPORT INFORMATION
  Report Type: Report from Study
  Country: None (occurrence: US)
  Receive Date: 20170418
  Receipt Date: 20170622
  Transmission Date: 20170830
  Serious: Yes (Other)
  Sender: FDA-Public Use
  Company Number: US-ABBVIE-17K-163-1941789-00

PATIENT
  Sex: Male
  Weight: 72.64 kg

DRUGS (2)
  1. LISINOPRIL. [Concomitant]
     Active Substance: LISINOPRIL
     Indication: PRODUCT USED FOR UNKNOWN INDICATION
  2. HUMIRA [Suspect]
     Active Substance: ADALIMUMAB
     Indication: CROHN^S DISEASE
     Route: 058
     Dates: start: 20170228, end: 20170527

REACTIONS (7)
  - Sinusitis [Unknown]
  - Tinnitus [Recovered/Resolved]
  - Blood pressure increased [Unknown]
  - Precancerous skin lesion [Recovered/Resolved]
  - Ocular hyperaemia [Recovered/Resolved]
  - Rash macular [Recovered/Resolved]
  - Hypertension [Recovering/Resolving]

NARRATIVE: CASE EVENT DATE: 2017
